FAERS Safety Report 9602241 (Version 1)
Quarter: 2013Q4

REPORT INFORMATION
  Report Type: Spontaneous
  Country: FR (occurrence: None)
  Receive Date: 20131003
  Receipt Date: 20131003
  Transmission Date: 20140711
  Serious: Yes (Other)
  Sender: FDA-Public Use
  Company Number: SYM-2013-11132

PATIENT
  Age: 66 Year
  Sex: Male

DRUGS (4)
  1. ACICLOVIR [Suspect]
     Indication: HERPES ZOSTER
     Route: 061
     Dates: start: 20130513
  2. VOLTARENE LP [Suspect]
     Indication: PAIN
     Route: 048
  3. ZELITREX [Suspect]
     Route: 048
     Dates: start: 20130513
  4. DERINOX [Suspect]
     Indication: NASAL OBSTRUCTION
     Dates: start: 20130513

REACTIONS (6)
  - Urticaria [None]
  - Nasal obstruction [None]
  - Rash pruritic [None]
  - Eyelid oedema [None]
  - Respiratory disorder [None]
  - Erythema [None]
